FAERS Safety Report 11110085 (Version 2)
Quarter: 2015Q3

REPORT INFORMATION
  Report Type: Spontaneous
  Country: US (occurrence: US)
  Receive Date: 20150513
  Receipt Date: 20150812
  Transmission Date: 20151125
  Serious: No
  Sender: FDA-Public Use
  Company Number: US-PFIZER INC-2015158670

PATIENT
  Age: 78 Year
  Sex: Female

DRUGS (2)
  1. AROMASIN [Suspect]
     Active Substance: EXEMESTANE
     Dosage: 25 MG, 1X/DAY
     Dates: start: 2015
  2. AFINITOR [Concomitant]
     Active Substance: EVEROLIMUS
     Dosage: 10 MG, 1X/DAY
     Dates: start: 2015

REACTIONS (3)
  - Nasopharyngitis [Recovered/Resolved]
  - Bronchitis [Recovered/Resolved]
  - Hypersensitivity [Recovered/Resolved]
